FAERS Safety Report 18309324 (Version 1)
Quarter: 2020Q3

REPORT INFORMATION
  Report Type: Report from Study
  Country: US (occurrence: US)
  Receive Date: 20200924
  Receipt Date: 20200924
  Transmission Date: 20201103
  Serious: Yes (Other)
  Sender: FDA-Public Use
  Company Number: US-BRISTOL-MYERS SQUIBB COMPANY-BMS-2020-076329

PATIENT
  Age: 68 Year
  Sex: Male
  Weight: 83.91 kg

DRUGS (2)
  1. APIXABAN [Suspect]
     Active Substance: APIXABAN
     Indication: CEREBROVASCULAR ACCIDENT PROPHYLAXIS
     Dosage: 5 MILLIGRAM, BID
     Route: 048
     Dates: start: 2020
  2. APIXABAN [Suspect]
     Active Substance: APIXABAN
     Dosage: 2.5 MILLIGRAM, BID
     Route: 048
     Dates: start: 20200915

REACTIONS (9)
  - Oesophageal carcinoma [Unknown]
  - Skin haemorrhage [Unknown]
  - Tooth disorder [Unknown]
  - Hypotension [Recovered/Resolved]
  - Contusion [Unknown]
  - Lung cancer metastatic [Unknown]
  - Dizziness [Recovered/Resolved]
  - Weight decreased [Unknown]
  - Prescribed underdose [Unknown]

NARRATIVE: CASE EVENT DATE: 20200915
